FAERS Safety Report 5391264-9 (Version None)
Quarter: 2007Q3

REPORT INFORMATION
  Report Type: 
  Country: None (occurrence: None)
  Receive Date: 20070717
  Receipt Date: 20070706
  Transmission Date: 20080115
  Serious: Yes (Death, Hospitalization)
  Sender: FDA-Public Use
  Company Number: CIP06002857

PATIENT
  Age: 87 Year
  Sex: Male

DRUGS (5)
  1. NITROFURANTOIN MACROCRYSTALS(NITROFURANTOIN, MACROCRYSTALS) CAPSULE, U [Suspect]
     Dosage: 50 MG, EVERY 6 HR, ORAL
     Route: 048
     Dates: start: 20070309, end: 20070301
  2. NITROFURANTOIN (MONOHYDRATE/MACROCRYSTALS) [Suspect]
     Dosage: 100 MG, 2 /DAY,
     Dates: start: 20061101
  3. ISOSORBIDE (ISOSORBIDE) [Concomitant]
  4. METAPROTERENOL /00000201/ (ORCIPRENALINE) [Concomitant]
  5. DRUG NOS [Concomitant]

REACTIONS (4)
  - ABASIA [None]
  - CARDIAC FAILURE [None]
  - HEART RATE DECREASED [None]
  - LOSS OF CONSCIOUSNESS [None]
